FAERS Safety Report 5475132-X (Version None)
Quarter: 2007Q4

REPORT INFORMATION
  Report Type: 
  Country: None (occurrence: None)
  Receive Date: 20071002
  Receipt Date: 20070928
  Transmission Date: 20080405
  Serious: Yes (Other)
  Sender: FDA-Public Use
  Company Number: US-ROXANE LABORATORIES, INC-2007-DE-05837GD

PATIENT
  Age: 57 Year
  Sex: Male

DRUGS (10)
  1. AMANTADINE HCL [Suspect]
  2. SERTRALINE [Suspect]
     Indication: DEPRESSIVE SYMPTOM
  3. ARIPIPRAZOLE [Suspect]
     Indication: SCHIZOPHRENIA, PARANOID TYPE
  4. ARIPIPRAZOLE [Suspect]
  5. ARIPIPRAZOLE [Suspect]
  6. ARIPIPRAZOLE [Suspect]
  7. ARIPIPRAZOLE [Suspect]
  8. LORAZEPAM [Concomitant]
     Indication: SCHIZOPHRENIA, PARANOID TYPE
  9. NIFEDIPINE [Concomitant]
  10. LANSOPRAZOLE [Concomitant]

REACTIONS (4)
  - AGITATION [None]
  - ANXIETY [None]
  - DRUG INEFFECTIVE [None]
  - PSYCHOTIC DISORDER [None]
